FAERS Safety Report 8459343-7 (Version None)
Quarter: 2012Q2

REPORT INFORMATION
  Report Type: 
  Country: None (occurrence: None)
  Receive Date: 20120615
  Receipt Date: 20120531
  Transmission Date: 20120825
  Serious: Yes (Hospitalization)
  Sender: FDA-Public Use
  Company Number: 2012000138

PATIENT
  Age: 84 Year
  Sex: Male

DRUGS (7)
  1. DIAZIDAN (GLICLAZIDE) [Concomitant]
  2. ACEON [Suspect]
     Indication: CORONARY ARTERY DISEASE
     Dosage: 10 MG, QD, ORAL, 5 MG, QD, ORAL
     Route: 048
     Dates: end: 20120422
  3. ACEON [Suspect]
     Indication: CORONARY ARTERY DISEASE
     Dosage: 10 MG, QD, ORAL, 5 MG, QD, ORAL
     Route: 048
     Dates: start: 20120423, end: 20120511
  4. TAMSUDIL (TAMSULOSIN HYDROCHLORIDE) [Concomitant]
  5. POLOCARD (ACETYLSALICYLIC ACID) [Concomitant]
  6. CONTROLOC (PANTOPRAZOLE) [Concomitant]
  7. LOFRAL (AMLODIPINE BESILATE) [Concomitant]

REACTIONS (6)
  - ANAEMIA [None]
  - FATIGUE [None]
  - GASTRIC NEOPLASM [None]
  - DYSPNOEA [None]
  - EXERCISE TOLERANCE DECREASED [None]
  - DRUG INEFFECTIVE [None]
